FAERS Safety Report 23616011 (Version 2)
Quarter: 2024Q1

REPORT INFORMATION
  Report Type: Spontaneous
  Country: US (occurrence: US)
  Receive Date: 20240311
  Receipt Date: 20240321
  Transmission Date: 20240410
  Serious: Yes (Hospitalization, Other)
  Sender: FDA-Public Use
  Company Number: US-ALKEM LABORATORIES LIMITED-US-ALKEM-2024-03932

PATIENT
  Age: 41 Year
  Sex: Female

DRUGS (2)
  1. TACROLIMUS [Interacting]
     Active Substance: TACROLIMUS
     Indication: Immunosuppressant drug therapy
     Dosage: 4 MILLIGRAM, QD (EXTENDED-RELEASE )
     Route: 065
  2. NIRMATRELVIR\RITONAVIR [Concomitant]
     Active Substance: NIRMATRELVIR\RITONAVIR
     Indication: COVID-19
     Dosage: UNK (10 DOSES)
     Route: 065

REACTIONS (4)
  - Drug level increased [Recovering/Resolving]
  - Acute kidney injury [Recovered/Resolved]
  - Hyperkalaemia [Recovered/Resolved]
  - Drug interaction [Recovering/Resolving]
